FAERS Safety Report 23992081 (Version 1)
Quarter: 2024Q2

REPORT INFORMATION
  Report Type: Spontaneous
  Country: US (occurrence: US)
  Receive Date: 20240620
  Receipt Date: 20240620
  Transmission Date: 20240717
  Serious: No
  Sender: FDA-Public Use
  Company Number: US-ROCHE-10000000561

PATIENT
  Sex: Female

DRUGS (1)
  1. XOLAIR [Suspect]
     Active Substance: OMALIZUMAB
     Indication: Asthma
     Route: 065

REACTIONS (9)
  - Keratoconus [Not Recovered/Not Resolved]
  - Condition aggravated [Not Recovered/Not Resolved]
  - Depression [Not Recovered/Not Resolved]
  - Fatigue [Not Recovered/Not Resolved]
  - Initial insomnia [Not Recovered/Not Resolved]
  - Decreased appetite [Not Recovered/Not Resolved]
  - Restlessness [Not Recovered/Not Resolved]
  - Stress [Not Recovered/Not Resolved]
  - Cough [Not Recovered/Not Resolved]
